FAERS Safety Report 18162721 (Version 1)
Quarter: 2020Q3

REPORT INFORMATION
  Report Type: Spontaneous
  Country: US (occurrence: US)
  Receive Date: 20200818
  Receipt Date: 20200818
  Transmission Date: 20201103
  Serious: Yes (Life-Threatening, Disabling, Other)
  Sender: FDA-Public Use
  Company Number: None

PATIENT
  Age: 57 Year
  Sex: Female
  Weight: 55.79 kg

DRUGS (1)
  1. RISPERDAL [Suspect]
     Active Substance: RISPERIDONE
     Indication: PRODUCT USED FOR UNKNOWN INDICATION
     Dates: start: 20180115, end: 20180201

REACTIONS (8)
  - Mania [None]
  - Schizophrenia [None]
  - Seizure [None]
  - Mental disorder [None]
  - Hypotension [None]
  - Hostility [None]
  - Abnormal behaviour [None]
  - Agitation [None]

NARRATIVE: CASE EVENT DATE: 20180119
